FAERS Safety Report 6446759-3 (Version None)
Quarter: 2009Q4

REPORT INFORMATION
  Report Type: 
  Country: None (occurrence: None)
  Receive Date: 20091119
  Receipt Date: 20091106
  Transmission Date: 20100525
  Serious: Yes (Hospitalization)
  Sender: FDA-Public Use
  Company Number: PHHY2009FR48644

PATIENT
  Age: 65 Year
  Sex: Female

DRUGS (8)
  1. ESIDRIX [Suspect]
     Indication: HYPERTENSION
     Dosage: 1 DF (25 MG ) DAILY
     Route: 048
  2. METFORMIN HCL [Suspect]
     Indication: TYPE 2 DIABETES MELLITUS
     Dosage: 850 MG DAILY
     Route: 048
     Dates: end: 20090324
  3. JANUVIA [Suspect]
     Indication: TYPE 2 DIABETES MELLITUS
     Dosage: 60 MG DAILY
     Route: 048
     Dates: start: 20090310, end: 20090317
  4. COVERSYL [Suspect]
     Indication: HYPERTENSION
     Route: 048
  5. DIAMICRON [Suspect]
     Indication: TYPE 2 DIABETES MELLITUS
     Dosage: UNK
     Route: 048
     Dates: start: 20090317
  6. TAHOR [Concomitant]
  7. TARDYFERON [Concomitant]
  8. BISOPROLOL [Concomitant]
     Dosage: 2 DF (10 MG ) DAILY

REACTIONS (8)
  - ANURIA [None]
  - BLOOD CREATININE INCREASED [None]
  - BLOOD SODIUM DECREASED [None]
  - DIABETES MELLITUS INADEQUATE CONTROL [None]
  - DIARRHOEA [None]
  - DYSPEPSIA [None]
  - HYPERKALAEMIA [None]
  - RENAL FAILURE ACUTE [None]
